FAERS Safety Report 9988356 (Version 3)
Quarter: 2016Q1

REPORT INFORMATION
  Report Type: Report from Study
  Country: JP (occurrence: JP)
  Receive Date: 20140310
  Receipt Date: 20160125
  Transmission Date: 20160526
  Serious: Yes (Death, Other)
  Sender: FDA-Public Use
  Company Number: JP-ROCHE-1358579

PATIENT

DRUGS (3)
  1. LEUCOVORIN. [Suspect]
     Active Substance: LEUCOVORIN
     Indication: COLORECTAL CANCER METASTATIC
     Dosage: FOR 21 DAYS, FOLLOWED BY 7 DAYS OF REST.
     Route: 048
  2. BEVACIZUMAB [Suspect]
     Active Substance: BEVACIZUMAB
     Indication: COLORECTAL CANCER METASTATIC
     Dosage: ON DAYS 1 AND 15
     Route: 042
  3. TEGAFUR/URACIL [Suspect]
     Active Substance: TEGAFUR\URACIL
     Indication: COLORECTAL CANCER METASTATIC
     Dosage: TREATMENT REPEATED EVERY 28 DAYS
     Route: 065

REACTIONS (13)
  - Anaemia [Unknown]
  - Stomatitis [Unknown]
  - Dehydration [Unknown]
  - Diarrhoea [Unknown]
  - Neutropenia [Unknown]
  - Death [Fatal]
  - Fatigue [Unknown]
  - Nausea [Unknown]
  - Vomiting [Unknown]
  - Haemorrhage [Unknown]
  - Hypertension [Unknown]
  - Thrombocytopenia [Unknown]
  - Multiple organ dysfunction syndrome [Unknown]
